FAERS Safety Report 9778018 (Version 1)
Quarter: 2013Q4

REPORT INFORMATION
  Report Type: Spontaneous
  Country: KR (occurrence: KR)
  Receive Date: 20131223
  Receipt Date: 20131223
  Transmission Date: 20140711
  Serious: Yes (Other)
  Sender: FDA-Public Use
  Company Number: KR-009507513-1312KOR008596

PATIENT
  Sex: Female

DRUGS (1)
  1. MERCILON [Suspect]
     Route: 048

REACTIONS (2)
  - Surgery [Unknown]
  - Drug dose omission [Unknown]
